FAERS Safety Report 10440294 (Version 1)
Quarter: 2014Q3

REPORT INFORMATION
  Report Type: Spontaneous
  Country: US (occurrence: US)
  Receive Date: 20140909
  Receipt Date: 20140909
  Transmission Date: 20150326
  Serious: Yes (Hospitalization, Other)
  Sender: FDA-Public Use
  Company Number: PHHY2014US109602

PATIENT
  Age: 67 Year
  Sex: Male

DRUGS (1)
  1. DONEPEZIL [Suspect]
     Active Substance: DONEPEZIL
     Indication: SUICIDE ATTEMPT
     Dosage: 290 MG, UNK

REACTIONS (9)
  - Bradycardia [Recovered/Resolved]
  - Delirium [Unknown]
  - Vomiting [Unknown]
  - Blood pressure increased [Unknown]
  - Suicide attempt [Unknown]
  - Drug level increased [Unknown]
  - Ileus [Unknown]
  - Overdose [Unknown]
  - Hyperhidrosis [Unknown]
